FAERS Safety Report 24909412 (Version 1)
Quarter: 2025Q1

REPORT INFORMATION
  Report Type: Spontaneous
  Country: FR (occurrence: FR)
  Receive Date: 20250131
  Receipt Date: 20250131
  Transmission Date: 20250409
  Serious: Yes (Other)
  Sender: TEVA
  Company Number: None

PATIENT
  Age: 30 Year
  Sex: Male
  Weight: 64 kg

DRUGS (2)
  1. DIAZEPAM [Suspect]
     Active Substance: DIAZEPAM
     Indication: Anxiety
     Dosage: DIAZEPAM TEVA
     Route: 048
     Dates: start: 20241210, end: 20241210
  2. DIAZEPAM [Suspect]
     Active Substance: DIAZEPAM
     Indication: Anxiety
     Dosage: DIAZEPAM TEVA
     Route: 048
     Dates: start: 20241211, end: 20241220

REACTIONS (5)
  - Amnesia [Recovering/Resolving]
  - Delusion [Recovering/Resolving]
  - Aggression [Recovering/Resolving]
  - Paradoxical drug reaction [Recovering/Resolving]
  - Agitation [Recovering/Resolving]

NARRATIVE: CASE EVENT DATE: 20241218
